FAERS Safety Report 15663801 (Version 1)
Quarter: 2018Q4

REPORT INFORMATION
  Report Type: Spontaneous
  Country: US (occurrence: US)
  Receive Date: 20181128
  Receipt Date: 20181128
  Transmission Date: 20190205
  Serious: Yes (Death, Other)
  Sender: FDA-Public Use
  Company Number: US-TEVA-2018-US-982201

PATIENT

DRUGS (1)
  1. DIPHENHYDRAMINE. [Suspect]
     Active Substance: DIPHENHYDRAMINE
     Route: 064

REACTIONS (4)
  - Foetal death [Fatal]
  - Overdose [Fatal]
  - Agonal rhythm [Unknown]
  - Foetal exposure during pregnancy [Unknown]
